FAERS Safety Report 7549214-2 (Version None)
Quarter: 2011Q2

REPORT INFORMATION
  Report Type: 
  Country: None (occurrence: None)
  Receive Date: 20110615
  Receipt Date: 20110602
  Transmission Date: 20111010
  Serious: Yes (Hospitalization, Other)
  Sender: FDA-Public Use
  Company Number: PHHY2011US49575

PATIENT
  Sex: Male
  Weight: 130.16 kg

DRUGS (2)
  1. TEGRETOL [Suspect]
     Indication: TRIGEMINAL NEURALGIA
     Dosage: 200 MG, UNK
  2. HYDROCODONE BITARTRATE [Suspect]
     Indication: PAIN

REACTIONS (16)
  - THROMBOSIS [None]
  - DISLOCATION OF VERTEBRA [None]
  - COLITIS [None]
  - BLOOD GLUCOSE INCREASED [None]
  - AREFLEXIA [None]
  - MUSCULAR WEAKNESS [None]
  - SEPTIC SHOCK [None]
  - FRACTURE [None]
  - SPINAL CORD HERNIATION [None]
  - FALL [None]
  - ARTHRITIS [None]
  - HEPATIC ENZYME INCREASED [None]
  - MUSCLE ATROPHY [None]
  - DEMYELINATION [None]
  - PULMONARY EMBOLISM [None]
  - BLOOD CHOLESTEROL INCREASED [None]
